FAERS Safety Report 7202365-4 (Version None)
Quarter: 2010Q4

REPORT INFORMATION
  Report Type: 
  Country: None (occurrence: None)
  Receive Date: 20101220
  Receipt Date: 20101206
  Transmission Date: 20110411
  Serious: Yes (Other)
  Sender: FDA-Public Use
  Company Number: 1000017738

PATIENT
  Age: 49 Year
  Sex: Male
  Weight: 82 kg

DRUGS (5)
  1. CITALOPRAM HYDROBROMIDE [Suspect]
     Dosage: (60 MG,ONCE), ORAL
     Route: 048
     Dates: start: 20101206, end: 20101206
  2. ERGENYL(SODIUM VALPROATE) [Suspect]
     Dosage: (1600 MG,ONCE), ORAL
     Route: 048
     Dates: start: 20101206, end: 20101206
  3. PANTOPRAZOLE SODIUM [Suspect]
     Dosage: (ONCE), ORAL
     Route: 048
     Dates: start: 20101206, end: 20101206
  4. XIMOVAN (ZOPICLONE) (7.5 MILLIGRAM, TABLETS) [Suspect]
     Dosage: (52.5 MG, ONCE), ORAL
     Route: 048
     Dates: start: 20101206, end: 20101206
  5. RISPERDAL [Suspect]
     Dosage: (1 DOSAGE FORMS, ONCE), ORAL
     Route: 048
     Dates: start: 20101206, end: 20101206

REACTIONS (3)
  - DRUG ABUSE [None]
  - INTENTIONAL OVERDOSE [None]
  - SOMNOLENCE [None]
